FAERS Safety Report 25675239 (Version 2)
Quarter: 2025Q3

REPORT INFORMATION
  Report Type: Spontaneous
  Country: BR (occurrence: BR)
  Receive Date: 20250813
  Receipt Date: 20250919
  Transmission Date: 20251021
  Serious: No
  Sender: JOHNSON AND JOHNSON
  Company Number: BR-JNJFOC-20250804382

PATIENT
  Age: 46 Year
  Sex: Female
  Weight: 70 kg

DRUGS (2)
  1. GOLIMUMAB [Suspect]
     Active Substance: GOLIMUMAB
     Indication: Axial spondyloarthritis
     Dosage: STRENGTH: 50.00 MG / 0.50 ML
     Route: 065
     Dates: start: 20250623
  2. GOLIMUMAB [Suspect]
     Active Substance: GOLIMUMAB

REACTIONS (3)
  - Product dose omission issue [Unknown]
  - Device defective [Unknown]
  - Device failure [Unknown]

NARRATIVE: CASE EVENT DATE: 20250723
